FAERS Safety Report 6240440-1 (Version None)
Quarter: 2009Q2

REPORT INFORMATION
  Report Type: 
  Country: None (occurrence: None)
  Receive Date: 20090623
  Receipt Date: 20090410
  Transmission Date: 20091009
  Serious: Yes (Death, Life-Threatening, Other)
  Sender: FDA-Public Use
  Company Number: RU-NOVOPROD-288501

PATIENT
  Age: 62 Year
  Sex: Female
  Weight: 76.4 kg

DRUGS (2)
  1. ACTRAPID HM [Suspect]
     Indication: TYPE 2 DIABETES MELLITUS
     Dosage: UNKNOWN
  2. PROTAPHANE HM PENFILL [Suspect]
     Indication: TYPE 2 DIABETES MELLITUS
     Dosage: UNKNOWN

REACTIONS (1)
  - MYOCARDIAL INFARCTION [None]
